FAERS Safety Report 6765092-3 (Version None)
Quarter: 2010Q2

REPORT INFORMATION
  Report Type: 
  Country: None (occurrence: None)
  Receive Date: 20100609
  Receipt Date: 20100609
  Transmission Date: 20101027
  Serious: Yes (Hospitalization, Other)
  Sender: FDA-Public Use
  Company Number: None

PATIENT
  Age: 9 Year
  Sex: Male
  Weight: 56.6996 kg

DRUGS (1)
  1. ABILIFY [Suspect]
     Indication: AUTISM
     Dosage: 1/2 PILL - 15 MG- 1X DAY PM PO
     Route: 048
     Dates: start: 20060701, end: 20100501

REACTIONS (2)
  - DYSKINESIA [None]
  - EXTRAPYRAMIDAL DISORDER [None]
